FAERS Safety Report 9687719 (Version 1)
Quarter: 2013Q4

REPORT INFORMATION
  Report Type: Spontaneous
  Country: US (occurrence: None)
  Receive Date: 20131113
  Receipt Date: 20131113
  Transmission Date: 20140711
  Serious: Yes (Other)
  Sender: FDA-Public Use
  Company Number: None

PATIENT
  Age: 23 Year
  Sex: Male
  Weight: 74.84 kg

DRUGS (2)
  1. SOTRET [Suspect]
     Indication: ACNE
     Dosage: 1 PILL
     Route: 048
     Dates: start: 20081013, end: 20090109
  2. DEPAKOTE [Concomitant]

REACTIONS (6)
  - Dry mouth [None]
  - Lip exfoliation [None]
  - Discomfort [None]
  - Emotional disorder [None]
  - Tongue disorder [None]
  - Oral disorder [None]
